FAERS Safety Report 4662440-5 (Version None)
Quarter: 2005Q2

REPORT INFORMATION
  Report Type: 
  Country: None (occurrence: None)
  Receive Date: 20050512
  Receipt Date: 20050502
  Transmission Date: 20051028
  Serious: Yes (Hospitalization)
  Sender: FDA-Public Use
  Company Number: 2005-127933-NL

PATIENT
  Age: 37 Year
  Sex: Female

DRUGS (4)
  1. DANAPAROID SODIUM [Suspect]
     Indication: PROPHYLAXIS
     Dosage: 2400 ANTI_XA
     Route: 058
     Dates: start: 20050213, end: 20050302
  2. PREDNISONE [Concomitant]
  3. OMEPRAZOLE [Concomitant]
  4. AMBENONIUM CHLORIDE [Concomitant]

REACTIONS (2)
  - INJECTION SITE REACTION [None]
  - SKIN NECROSIS [None]
